FAERS Safety Report 7475885-5 (Version None)
Quarter: 2011Q2

REPORT INFORMATION
  Report Type: 
  Country: None (occurrence: None)
  Receive Date: 20110512
  Receipt Date: 20110505
  Transmission Date: 20111010
  Serious: Yes (Other)
  Sender: FDA-Public Use
  Company Number: US-AMGEN-USASP2011023763

PATIENT
  Sex: Female

DRUGS (2)
  1. ENBREL [Suspect]
     Dates: start: 20100101
  2. ENBREL [Suspect]
     Indication: RHEUMATOID ARTHRITIS
     Dosage: UNK
     Dates: start: 20100101

REACTIONS (4)
  - STEVENS-JOHNSON SYNDROME [None]
  - SKIN LESION [None]
  - HYPERSENSITIVITY [None]
  - SKIN INFECTION [None]
